FAERS Safety Report 8172782-7 (Version None)
Quarter: 2012Q1

REPORT INFORMATION
  Report Type: 
  Country: None (occurrence: None)
  Receive Date: 20120229
  Receipt Date: 20120226
  Transmission Date: 20120608
  Serious: Yes (Life-Threatening, Hospitalization, Other)
  Sender: FDA-Public Use
  Company Number: FI-NOVOPROD-339261

PATIENT
  Age: 58 Year
  Sex: Male
  Weight: 118.5 kg

DRUGS (2)
  1. LIRAGLUTIDE FLEXPEN [Suspect]
     Indication: TYPE 2 DIABETES MELLITUS
     Dosage: 1.8 IU, QD
     Route: 058
     Dates: start: 20110831, end: 20111106
  2. METFORMIN HYDROCHLORIDE [Concomitant]
     Indication: TYPE 2 DIABETES MELLITUS
     Dosage: 3000 MG, QD
     Dates: start: 20031201

REACTIONS (12)
  - CONVULSION [None]
  - RENAL CYST [None]
  - PANCREATITIS [None]
  - RENAL FAILURE [None]
  - AORTIC ARTERIOSCLEROSIS [None]
  - HEPATIC STEATOSIS [None]
  - CARDIOMEGALY [None]
  - SHOCK [None]
  - RENAL FAILURE ACUTE [None]
  - PERICARDIAL EFFUSION [None]
  - ARTERIOSCLEROSIS [None]
  - INFECTION [None]
